FAERS Safety Report 12168301 (Version 1)
Quarter: 2016Q1

REPORT INFORMATION
  Report Type: Spontaneous
  Country: US (occurrence: None)
  Receive Date: 20160309
  Receipt Date: 20160309
  Transmission Date: 20160526
  Serious: Yes (Disabling)
  Sender: FDA-Public Use
  Company Number: None

PATIENT
  Age: 75 Year
  Sex: Female
  Weight: 68 kg

DRUGS (10)
  1. FONDAPARINUX 2.5 MG [Suspect]
     Active Substance: FONDAPARINUX
     Indication: THROMBOSIS PROPHYLAXIS
     Route: 058
  2. ESTRADIOL. [Concomitant]
     Active Substance: ESTRADIOL
  3. VIMPAT [Concomitant]
     Active Substance: LACOSAMIDE
  4. DULOXETINE. [Concomitant]
     Active Substance: DULOXETINE
  5. LISINOPRIL. [Concomitant]
     Active Substance: LISINOPRIL
  6. VITAMIN D2 [Concomitant]
     Active Substance: ERGOCALCIFEROL
  7. ATENOLOL. [Concomitant]
     Active Substance: ATENOLOL
  8. TIZANIDINE. [Concomitant]
     Active Substance: TIZANIDINE
  9. LIDOCAINE. [Concomitant]
     Active Substance: LIDOCAINE
  10. PEPCID [Concomitant]
     Active Substance: FAMOTIDINE

REACTIONS (4)
  - Pupillary light reflex tests abnormal [None]
  - Dyspnoea [None]
  - Headache [None]
  - Unresponsive to stimuli [None]

NARRATIVE: CASE EVENT DATE: 20160304
